FAERS Safety Report 4379163-2 (Version None)
Quarter: 2004Q2

REPORT INFORMATION
  Report Type: 
  Country: None (occurrence: None)
  Receive Date: 20040614
  Receipt Date: 20040601
  Transmission Date: 20050107
  Serious: Yes (Hospitalization)
  Sender: FDA-Public Use
  Company Number: 200412736BCC

PATIENT
  Age: 46 Year
  Sex: Male
  Weight: 77.1115 kg

DRUGS (8)
  1. ASPIRIN [Suspect]
     Indication: MYOCARDIAL INFARCTION
     Dosage: 325 MG, QD, ORAL
     Route: 048
     Dates: start: 20040207, end: 20040218
  2. ASPIRIN [Suspect]
     Indication: PROPHYLAXIS
     Dosage: 325 MG, QD, ORAL
     Route: 048
     Dates: start: 20040207, end: 20040218
  3. ANGIOMAX [Suspect]
     Indication: ACUTE CORONARY SYNDROME
     Dosage: SEE IMAGE
     Route: 040
     Dates: start: 20040204, end: 20040205
  4. ANGIOMAX [Suspect]
     Indication: ACUTE CORONARY SYNDROME
     Dosage: SEE IMAGE
     Route: 040
     Dates: start: 20040204
  5. CRESTOR [Suspect]
     Indication: HYPERLIPIDAEMIA
     Dosage: 10 MG, QD, ORAL
     Route: 048
     Dates: start: 20040215, end: 20040218
  6. TESSALON [Concomitant]
  7. PROPACET 100 [Concomitant]
  8. LASIX [Concomitant]

REACTIONS (8)
  - ABNORMAL FAECES [None]
  - BURNING SENSATION [None]
  - DIARRHOEA HAEMORRHAGIC [None]
  - HYPOTENSION [None]
  - LOSS OF CONSCIOUSNESS [None]
  - PRURITUS GENERALISED [None]
  - SYNCOPE [None]
  - WHITE BLOOD CELL COUNT INCREASED [None]
